FAERS Safety Report 10512482 (Version 2)
Quarter: 2014Q4

REPORT INFORMATION
  Report Type: Report from Study
  Country: AR (occurrence: AR)
  Receive Date: 20141011
  Receipt Date: 20141014
  Transmission Date: 20150528
  Serious: Yes (Other)
  Sender: FDA-Public Use
  Company Number: PHHY2014AR131957

PATIENT
  Sex: Male

DRUGS (4)
  1. DIOVAN D [Suspect]
     Active Substance: HYDROCHLOROTHIAZIDE\VALSARTAN
     Indication: HYPERTENSION
     Dosage: FORMULATION: 160/25 MG
     Route: 048
     Dates: start: 2009, end: 201405
  2. DIOVAN D [Suspect]
     Active Substance: HYDROCHLOROTHIAZIDE\VALSARTAN
     Dosage: FORMULATION: 320/12.5 MG
     Route: 048
     Dates: start: 201406, end: 201407
  3. DIOVAN D [Suspect]
     Active Substance: HYDROCHLOROTHIAZIDE\VALSARTAN
     Dosage: FORMULATION: 320/25 MG
     Route: 048
     Dates: start: 201405, end: 201406
  4. DIOVAN D [Suspect]
     Active Substance: HYDROCHLOROTHIAZIDE\VALSARTAN
     Dosage: FORMULATION: 320/25 MG
     Route: 048
     Dates: start: 201407, end: 201408

REACTIONS (2)
  - Blood triglycerides increased [Unknown]
  - Diabetes mellitus [Unknown]
